FAERS Safety Report 5059862-X (Version None)
Quarter: 2006Q3

REPORT INFORMATION
  Report Type: 
  Country: None (occurrence: None)
  Receive Date: 20060724
  Receipt Date: 20060719
  Transmission Date: 20061208
  Serious: Yes (Death, Hospitalization)
  Sender: FDA-Public Use
  Company Number: US-SANOFI-SYNTHELABO-F03200600164

PATIENT
  Sex: Female
  Weight: 60.8 kg

DRUGS (6)
  1. OXALIPLATIN [Suspect]
     Indication: NON-SMALL CELL LUNG CANCER STAGE IIIB
     Route: 042
     Dates: start: 20060101, end: 20060101
  2. AVAPRO [Concomitant]
     Route: 048
  3. VITAMIN E [Concomitant]
     Route: 048
  4. FISH OIL [Concomitant]
     Route: 048
  5. AVASTIN [Suspect]
     Indication: NON-SMALL CELL LUNG CANCER STAGE IIIB
     Dosage: 15 MG/KG, 913 MG EVERY 3 WEEKS
     Route: 042
     Dates: start: 20060705, end: 20060705
  6. GEMZAR [Suspect]
     Indication: NON-SMALL CELL LUNG CANCER STAGE IIIB
     Route: 042
     Dates: start: 20060101, end: 20060101

REACTIONS (2)
  - HAEMORRHAGE INTRACRANIAL [None]
  - REFUSAL OF TREATMENT BY RELATIVE [None]
